FAERS Safety Report 15904465 (Version 6)
Quarter: 2022Q4

REPORT INFORMATION
  Report Type: Report from Study
  Country: GB (occurrence: None)
  Receive Date: 20190204
  Receipt Date: 20221208
  Transmission Date: 20230113
  Serious: Yes (Death, Hospitalization, Other)
  Sender: FDA-Public Use
  Company Number: None

PATIENT
  Age: 50 Year
  Sex: Female

DRUGS (25)
  1. DOCETAXEL [Suspect]
     Active Substance: DOCETAXEL
     Indication: HER2 positive breast cancer
     Route: 042
     Dates: start: 20160621, end: 20161026
  2. CAPECITABINE [Suspect]
     Active Substance: CAPECITABINE
     Indication: HER2 positive breast cancer
     Route: 048
     Dates: start: 20160427, end: 20160525
  3. PERTUZUMAB [Suspect]
     Active Substance: PERTUZUMAB
     Indication: HER2 positive breast cancer
     Dosage: LOADING DOSE, LAST ADMINISTRATION: 20-JUN-2016
     Route: 042
     Dates: start: 20160620
  4. ADO-TRASTUZUMAB EMTANSINE [Suspect]
     Active Substance: ADO-TRASTUZUMAB EMTANSINE
     Indication: HER2 positive breast cancer
     Dosage: ALSO RECEIVED 220 MG IV ON 12-JAN-2017, 3 WEEKS INTERVAL?ALSO RECEIVED 651 MG IV (LOADING DOSE)
     Route: 042
     Dates: start: 20161123
  5. TRASTUZUMAB [Suspect]
     Active Substance: TRASTUZUMAB
     Indication: HER2 positive breast cancer
     Dosage: 651 MG RECEIVED ON 20-JUN-2016 TO 20-JUN-2016,LOADING DOSE
     Route: 042
     Dates: start: 20160714
  6. LEVEMIR [Concomitant]
     Active Substance: INSULIN DETEMIR
     Dosage: 50 UNIT
     Route: 030
  7. NOVORAPID [Concomitant]
     Active Substance: INSULIN ASPART
     Route: 030
  8. DAPSONE [Concomitant]
     Active Substance: DAPSONE
     Route: 048
     Dates: start: 20161218, end: 201711
  9. ENOXAPARIN [Concomitant]
     Active Substance: ENOXAPARIN
     Dosage: 150 MG IV RECEIVED ON 01-SEP-2016 TO 03-SEP-2016
     Route: 058
     Dates: start: 20160901, end: 20160903
  10. SULFAMETHOXAZOLE\TRIMETHOPRIM [Concomitant]
     Active Substance: SULFAMETHOXAZOLE\TRIMETHOPRIM
     Route: 048
     Dates: start: 201612, end: 20161218
  11. CHLORPHENIRAMINE MALEATE [Concomitant]
     Active Substance: CHLORPHENIRAMINE MALEATE
     Dates: start: 20160914, end: 20161026
  12. FUCIDIN [Concomitant]
     Active Substance: FUSIDATE SODIUM
     Dosage: TOPICAL, UNK UNK, Q4D
     Dates: start: 20171123, end: 20171208
  13. HYDROCORTISONE [Concomitant]
     Active Substance: HYDROCORTISONE
     Route: 042
     Dates: start: 20160914, end: 20161024
  14. FILGRASTIM [Concomitant]
     Active Substance: FILGRASTIM
     Route: 058
     Dates: start: 20161123, end: 20170209
  15. METOCLOPRAMIDE [Concomitant]
     Active Substance: METOCLOPRAMIDE
     Indication: Vomiting
     Route: 048
     Dates: start: 20160621, end: 20161026
  16. LOPERAMIDE [Concomitant]
     Active Substance: LOPERAMIDE
     Route: 048
  17. VENTOLIN [Concomitant]
     Active Substance: ALBUTEROL SULFATE
  18. ENOXAPARIN [Concomitant]
     Active Substance: ENOXAPARIN
     Dates: start: 20171119, end: 20171127
  19. METOCLOPRAMIDE [Concomitant]
     Active Substance: METOCLOPRAMIDE
     Indication: Vomiting
     Dates: start: 20171016, end: 20171016
  20. METOCLOPRAMIDE [Concomitant]
     Active Substance: METOCLOPRAMIDE
     Indication: Vomiting
     Dates: start: 20171021, end: 20171023
  21. ADO-TRASTUZUMAB EMTANSINE [Suspect]
     Active Substance: ADO-TRASTUZUMAB EMTANSINE
     Indication: Product used for unknown indication
     Route: 042
     Dates: start: 20170112
  22. PERTUZUMAB [Suspect]
     Active Substance: PERTUZUMAB
     Indication: Product used for unknown indication
     Dosage: MAINTENANCE DOSE
     Route: 042
     Dates: start: 20160714
  23. TRASTUZUMAB [Suspect]
     Active Substance: TRASTUZUMAB
     Indication: HER2 positive breast cancer
     Dosage: LAST ADMINISTRATION: 20-JUN-2016, LOADING DOSE
     Route: 042
     Dates: start: 20160620
  24. ADO-TRASTUZUMAB EMTANSINE [Suspect]
     Active Substance: ADO-TRASTUZUMAB EMTANSINE
     Indication: HER2 positive breast cancer
     Dates: start: 20170209
  25. ADO-TRASTUZUMAB EMTANSINE [Suspect]
     Active Substance: ADO-TRASTUZUMAB EMTANSINE
     Indication: HER2 positive breast cancer
     Dates: start: 20170209

REACTIONS (5)
  - Oropharyngeal pain [Recovered/Resolved]
  - Neutropenic sepsis [Recovered/Resolved]
  - Cough [Recovered/Resolved]
  - Vomiting [Recovered/Resolved]
  - Disease progression [Fatal]

NARRATIVE: CASE EVENT DATE: 20160901
